FAERS Safety Report 12297929 (Version 1)
Quarter: 2016Q2

REPORT INFORMATION
  Report Type: Spontaneous
  Country: US (occurrence: US)
  Receive Date: 20160422
  Receipt Date: 20160422
  Transmission Date: 20160815
  Serious: No
  Sender: FDA-Public Use
  Company Number: US-PFIZER INC-2016208371

PATIENT
  Age: 43 Year
  Sex: Female
  Weight: 77 kg

DRUGS (1)
  1. CHANTIX [Suspect]
     Active Substance: VARENICLINE TARTRATE
     Indication: SMOKING CESSATION THERAPY
     Dosage: 1 MG, 2X/DAY (ONE IN MORNING AND ONE IN THE EVENING)
     Route: 048

REACTIONS (1)
  - Nausea [Recovered/Resolved]
